FAERS Safety Report 14827196 (Version 1)
Quarter: 2018Q2

REPORT INFORMATION
  Report Type: Spontaneous
  Country: US (occurrence: US)
  Receive Date: 20180405
  Receipt Date: 20180405
  Transmission Date: 20180711
  Serious: Yes (Hospitalization)
  Sender: FDA-Public Use
  Company Number: None

PATIENT
  Age: 72 Year
  Sex: Male

DRUGS (25)
  1. SYMBICORT [Concomitant]
     Active Substance: BUDESONIDE\FORMOTEROL FUMARATE DIHYDRATE
  2. REPATHA [Suspect]
     Active Substance: EVOLOCUMAB
     Indication: CORONARY ARTERY DISEASE
     Route: 058
     Dates: start: 20170322
  3. PROTONIX [Concomitant]
     Active Substance: PANTOPRAZOLE SODIUM
  4. LASIX [Concomitant]
     Active Substance: FUROSEMIDE
  5. LOSARTAN POT [Concomitant]
     Active Substance: LOSARTAN POTASSIUM
  6. ZANAFLEX [Concomitant]
     Active Substance: TIZANIDINE HYDROCHLORIDE
  7. ALBUTEROL. [Concomitant]
     Active Substance: ALBUTEROL
  8. PROAIR HFA [Concomitant]
     Active Substance: ALBUTEROL SULFATE
  9. VITAMIN D3 [Concomitant]
     Active Substance: CHOLECALCIFEROL
  10. PLAVIX [Concomitant]
     Active Substance: CLOPIDOGREL BISULFATE
  11. ISOSORBDIN [Concomitant]
  12. HYDROXY PAM [Concomitant]
  13. GABAPENTIN. [Concomitant]
     Active Substance: GABAPENTIN
  14. FISH OIL [Concomitant]
     Active Substance: FISH OIL
  15. ASPIRIN. [Concomitant]
     Active Substance: ASPIRIN
  16. SINGULAIR [Concomitant]
     Active Substance: MONTELUKAST SODIUM
  17. VITAMIN E [Concomitant]
     Active Substance: .ALPHA.-TOCOPHEROL
  18. METOPROLOL TARTRATE. [Concomitant]
     Active Substance: METOPROLOL TARTRATE
  19. LISINOPRIL. [Concomitant]
     Active Substance: LISINOPRIL
  20. VITAMIN C [Concomitant]
     Active Substance: ASCORBIC ACID
  21. PERCOCET [Concomitant]
     Active Substance: ACETAMINOPHEN\OXYCODONE HYDROCHLORIDE
  22. NITROSTAT [Concomitant]
     Active Substance: NITROGLYCERIN
  23. GLIPIZIDE. [Concomitant]
     Active Substance: GLIPIZIDE
  24. FLONASE [Concomitant]
     Active Substance: FLUTICASONE PROPIONATE
  25. CLARITIN [Concomitant]
     Active Substance: LORATADINE

REACTIONS (1)
  - Tonsil cancer [None]

NARRATIVE: CASE EVENT DATE: 20180323
